FAERS Safety Report 6145095-2 (Version None)
Quarter: 2009Q2

REPORT INFORMATION
  Report Type: 
  Country: None (occurrence: None)
  Receive Date: 20090406
  Receipt Date: 20090210
  Transmission Date: 20091009
  Serious: No
  Sender: FDA-Public Use
  Company Number: A0767705A

PATIENT
  Age: 60 Year
  Sex: Female

DRUGS (4)
  1. ADVAIR HFA [Suspect]
     Indication: ASTHMA
     Dosage: 2PUFF SINGLE DOSE
     Route: 055
     Dates: start: 20090206, end: 20090206
  2. VALIUM [Concomitant]
  3. MEDROL [Concomitant]
  4. ALBUTEROL [Concomitant]

REACTIONS (7)
  - CHEST DISCOMFORT [None]
  - CHILLS [None]
  - CHROMATURIA [None]
  - MUSCULAR WEAKNESS [None]
  - NASAL CONGESTION [None]
  - PALPITATIONS [None]
  - TREMOR [None]
